FAERS Safety Report 4541196-0 (Version None)
Quarter: 2004Q4

REPORT INFORMATION
  Report Type: 
  Country: None (occurrence: None)
  Receive Date: 20041227
  Receipt Date: 20041213
  Transmission Date: 20050328
  Serious: Yes (Hospitalization)
  Sender: FDA-Public Use
  Company Number: 2004-DE-06209GD

PATIENT
  Sex: 0

DRUGS (1)
  1. CLONIDINE HCL [Suspect]
     Dosage: 125 MCG ONCE
     Route: 048

REACTIONS (6)
  - BRADYCARDIA [None]
  - COMA [None]
  - DRUG TOXICITY [None]
  - HYPOTENSION [None]
  - RESPIRATORY DEPRESSION [None]
  - SOMNOLENCE [None]
